FAERS Safety Report 8586177-5 (Version None)
Quarter: 2012Q3

REPORT INFORMATION
  Report Type: 
  Country: None (occurrence: None)
  Receive Date: 20120810
  Receipt Date: 20120703
  Transmission Date: 20120928
  Serious: Yes (Other)
  Sender: FDA-Public Use
  Company Number: PL-GLAXOSMITHKLINE-B0813971A

PATIENT
  Age: 57 Year
  Sex: Female

DRUGS (4)
  1. TAMOXIFEN CITRATE [Concomitant]
     Indication: HORMONE THERAPY
     Route: 065
  2. CAPECITABINE [Suspect]
     Indication: BREAST CANCER
     Route: 065
     Dates: start: 20100801
  3. LAPATINIB [Suspect]
     Indication: BREAST CANCER
     Route: 065
     Dates: start: 20100801
  4. PACLITAXEL [Suspect]
     Indication: BREAST CANCER
     Route: 065
     Dates: start: 20080901

REACTIONS (4)
  - HEPATOTOXICITY [None]
  - BLOOD BILIRUBIN INCREASED [None]
  - BONE MARROW FAILURE [None]
  - PALMAR-PLANTAR ERYTHRODYSAESTHESIA SYNDROME [None]
